FAERS Safety Report 9144246 (Version 1)
Quarter: 2013Q1

REPORT INFORMATION
  Report Type: Spontaneous
  Country: JP (occurrence: JP)
  Receive Date: 20130306
  Receipt Date: 20130306
  Transmission Date: 20140127
  Serious: Yes (Hospitalization)
  Sender: FDA-Public Use
  Company Number: JP-ROCHE-1193599

PATIENT
  Age: 34 Year
  Sex: Female
  Weight: 71 kg

DRUGS (12)
  1. ACTEMRA [Suspect]
     Indication: TAKAYASU^S ARTERITIS
     Route: 041
     Dates: start: 20120903, end: 20120903
  2. PREDONINE [Concomitant]
     Indication: TAKAYASU^S ARTERITIS
     Route: 065
     Dates: start: 20090303
  3. PREDONINE [Concomitant]
     Indication: TAKAYASU^S ARTERITIS
     Route: 065
     Dates: start: 20090303
  4. BAYASPIRIN [Concomitant]
     Indication: TAKAYASU^S ARTERITIS
     Route: 048
     Dates: start: 20090220
  5. ISCOTIN [Concomitant]
     Indication: ANTIBIOTIC PROPHYLAXIS
     Route: 048
     Dates: start: 20090220
  6. RENIVACE [Concomitant]
     Indication: HYPERTENSION
     Route: 048
     Dates: start: 20090225
  7. NORVASC [Concomitant]
     Indication: HYPERTENSION
     Route: 048
     Dates: start: 20090223
  8. PARIET [Concomitant]
     Indication: PROPHYLAXIS AGAINST GASTROINTESTINAL ULCER
     Route: 048
     Dates: start: 20090331
  9. ACTONEL [Concomitant]
     Indication: OSTEOPOROSIS PROPHYLAXIS
     Route: 048
     Dates: start: 20090303
  10. METHYCOBAL [Concomitant]
     Indication: HYPOAESTHESIA
     Route: 048
     Dates: start: 20090710
  11. PURSENNID [Concomitant]
     Indication: CONSTIPATION
     Route: 048
     Dates: start: 20110318
  12. HALCION [Concomitant]
     Indication: INSOMNIA
     Route: 048
     Dates: start: 20090515

REACTIONS (4)
  - Melaena [Recovering/Resolving]
  - Enteritis [Unknown]
  - Intestinal ischaemia [Unknown]
  - Gastritis [Unknown]
